FAERS Safety Report 10624742 (Version 1)
Quarter: 2014Q4

REPORT INFORMATION
  Report Type: Spontaneous
  Country: ES (occurrence: ES)
  Receive Date: 20141204
  Receipt Date: 20141204
  Transmission Date: 20150529
  Serious: Yes (Hospitalization)
  Sender: FDA-Public Use
  Company Number: ES-AUROBINDO-AUR-APL-2014-12707

PATIENT
  Age: 77 Year
  Sex: Male

DRUGS (1)
  1. CARVEDILOL FILM-COATED TABLETS [Suspect]
     Active Substance: CARVEDILOL
     Indication: PRODUCT USED FOR UNKNOWN INDICATION
     Dosage: 25 MG, 1-0-3/4 ,UNK
     Route: 065

REACTIONS (12)
  - Electrocardiogram QRS complex abnormal [Recovered/Resolved]
  - Accidental overdose [Recovered/Resolved]
  - Nodal arrhythmia [Recovered/Resolved]
  - Sinus bradycardia [Recovered/Resolved]
  - Sinus rhythm [Recovered/Resolved]
  - Disorientation [Recovered/Resolved]
  - Atrioventricular block complete [Recovered/Resolved]
  - Hallucination, visual [Recovered/Resolved]
  - Medication error [Recovered/Resolved]
  - Balance disorder [Recovered/Resolved]
  - Loss of consciousness [Recovered/Resolved]
  - Toxicity to various agents [Recovered/Resolved]
